FAERS Safety Report 25267800 (Version 1)
Quarter: 2025Q2

REPORT INFORMATION
  Report Type: Spontaneous
  Country: TR (occurrence: TR)
  Receive Date: 20250505
  Receipt Date: 20250505
  Transmission Date: 20250716
  Serious: Yes (Hospitalization, Other)
  Sender: UNICHEM
  Company Number: TR-UNICHEM LABORATORIES LIMITED-UNI-2025-TR-002120

PATIENT

DRUGS (3)
  1. MEMANTINE HYDROCHLORIDE [Suspect]
     Active Substance: MEMANTINE HYDROCHLORIDE
     Indication: Dementia Alzheimer^s type
     Route: 065
  2. GALANTAMINE [Suspect]
     Active Substance: GALANTAMINE
     Indication: Dementia Alzheimer^s type
     Route: 065
  3. PERINDOPRIL [Concomitant]
     Active Substance: PERINDOPRIL
     Indication: Hypertension
     Route: 065

REACTIONS (4)
  - Sinus arrest [Unknown]
  - Syncope [Recovered/Resolved]
  - Sinus bradycardia [Unknown]
  - Dizziness [Recovered/Resolved]
